FAERS Safety Report 12740685 (Version 1)
Quarter: 2016Q3

REPORT INFORMATION
  Report Type: Spontaneous
  Country: DK (occurrence: DK)
  Receive Date: 20160914
  Receipt Date: 20160914
  Transmission Date: 20161109
  Serious: Yes (Life-Threatening, Hospitalization, Other)
  Sender: FDA-Public Use
  Company Number: DK-ALEMBIC PHARMACUETICALS LIMITED-2016SCAL000717

PATIENT

DRUGS (4)
  1. LEVOMEPROMAZINE [Interacting]
     Active Substance: LEVOMEPROMAZINE
     Indication: SCHIZOPHRENIA
     Dosage: 10 MG, UNK
     Route: 048
  2. QUETIAPINE. [Interacting]
     Active Substance: QUETIAPINE
     Indication: BIPOLAR DISORDER
     Dosage: 200 MG, UNK
     Route: 048
  3. LITHIUM CARBONATE. [Suspect]
     Active Substance: LITHIUM CARBONATE
     Indication: BIPOLAR DISORDER
     Dosage: 30 MMOL, UNK
     Route: 048
  4. PALIPERIDONE. [Interacting]
     Active Substance: PALIPERIDONE
     Indication: SCHIZOPHRENIA
     Dosage: 100 MG, MONTHLY
     Route: 030

REACTIONS (3)
  - Drug interaction [Unknown]
  - Electrocardiogram QT prolonged [Unknown]
  - Drug prescribing error [Unknown]
